FAERS Safety Report 16860080 (Version 2)
Quarter: 2019Q4

REPORT INFORMATION
  Report Type: Spontaneous
  Country: US (occurrence: US)
  Receive Date: 20190927
  Receipt Date: 20191017
  Transmission Date: 20200122
  Serious: Yes (Other)
  Sender: FDA-Public Use
  Company Number: US-ASTRAZENECA-2019SF34732

PATIENT
  Sex: Female

DRUGS (4)
  1. NOVOLOG [Concomitant]
     Active Substance: INSULIN ASPART
     Dates: start: 201909
  2. BYDUREON BCISE [Suspect]
     Active Substance: EXENATIDE
     Route: 065
     Dates: start: 201909
  3. ASPIRIN. [Concomitant]
     Active Substance: ASPIRIN
  4. BYETTA [Suspect]
     Active Substance: EXENATIDE
     Dosage: MEDICATION EVERY DAY, SOMETIMES MORE THAN ONCE A DAY
     Route: 065

REACTIONS (5)
  - Cerebrovascular accident [Unknown]
  - Increased tendency to bruise [Unknown]
  - Intentional device misuse [Recovered/Resolved]
  - Device issue [Unknown]
  - Incorrect dose administered by device [Unknown]
